FAERS Safety Report 4591168-5 (Version None)
Quarter: 2005Q1

REPORT INFORMATION
  Report Type: 
  Country: None (occurrence: None)
  Receive Date: 20050224
  Receipt Date: 20050224
  Transmission Date: 20050727
  Serious: Yes (Hospitalization)
  Sender: FDA-Public Use
  Company Number: None

PATIENT
  Age: 89 Year
  Sex: Male
  Weight: 70 kg

DRUGS (13)
  1. FORTEO [Suspect]
     Indication: OSTEOPOROSIS
     Dosage: 20 MCG SUBCUT. QD
     Route: 058
  2. ZELNORM [Concomitant]
  3. REGLAN [Concomitant]
  4. PROZAC [Concomitant]
  5. MUCINEX [Concomitant]
  6. CITRACEL [Concomitant]
  7. MEGACE [Concomitant]
  8. HYTRIN [Concomitant]
  9. AMBIEN [Concomitant]
  10. DURAGESIC-100 [Concomitant]
  11. DOCUSATE [Concomitant]
  12. VICODIN [Concomitant]
  13. LORAZEPAM [Concomitant]

REACTIONS (4)
  - CONTUSION [None]
  - ECCHYMOSIS [None]
  - HAEMATURIA [None]
  - THROMBOCYTOPENIA [None]
